FAERS Safety Report 17689085 (Version 1)
Quarter: 2020Q2

REPORT INFORMATION
  Report Type: Spontaneous
  Country: NL (occurrence: PT)
  Receive Date: 20200421
  Receipt Date: 20200421
  Transmission Date: 20200714
  Serious: Yes (Hospitalization, Other)
  Sender: FDA-Public Use
  Company Number: PT-FRESENIUS KABI-FK202003917

PATIENT
  Age: 8 Year
  Sex: Female
  Weight: 49 kg

DRUGS (9)
  1. ROCURONIUM [Suspect]
     Active Substance: ROCURONIUM BROMIDE
     Indication: ENDOTRACHEAL INTUBATION
     Dosage: 10 MILLIGRAM
     Route: 065
     Dates: start: 20200326
  2. SUGAMMADEX SODIUM [Suspect]
     Active Substance: SUGAMMADEX SODIUM
     Indication: NEUROMUSCULAR BLOCKADE REVERSAL
     Dosage: 200 MILLIGRAM
     Route: 065
     Dates: start: 20200326
  3. SUGAMMADEX SODIUM [Suspect]
     Active Substance: SUGAMMADEX SODIUM
     Dosage: 200 MILLIGRAM
     Route: 065
     Dates: start: 20200326
  4. ROCURONIUM [Suspect]
     Active Substance: ROCURONIUM BROMIDE
     Dosage: 50 MILLIGRAM
     Route: 065
     Dates: start: 20200326
  5. SUGAMMADEX SODIUM [Suspect]
     Active Substance: SUGAMMADEX SODIUM
     Dosage: 100 MILLIGRAM
     Route: 065
     Dates: start: 20200326
  6. ROCURONIUM [Suspect]
     Active Substance: ROCURONIUM BROMIDE
     Dosage: 10 MILLIGRAM AFTER (INTUBATION)
     Route: 065
     Dates: start: 20200227
  7. SUGAMMADEX SODIUM [Suspect]
     Active Substance: SUGAMMADEX SODIUM
     Dosage: 200 MILLIGRAM
     Route: 065
     Dates: start: 20200227
  8. ROCURONIUM [Suspect]
     Active Substance: ROCURONIUM BROMIDE
     Dosage: 25 MILLIGRAM
     Route: 065
     Dates: start: 20200227
  9. SUGAMMADEX SODIUM [Suspect]
     Active Substance: SUGAMMADEX SODIUM
     Dosage: 100 MILLIGRAM
     Route: 065
     Dates: start: 20200326

REACTIONS (9)
  - Cough [Unknown]
  - Idiopathic intracranial hypertension [Unknown]
  - Peripheral sensory neuropathy [Not Recovered/Not Resolved]
  - Lice infestation [Unknown]
  - Overdose [Unknown]
  - Blood potassium abnormal [Unknown]
  - Injection site pain [Unknown]
  - Therapy non-responder [Unknown]
  - Therapeutic product effect incomplete [Unknown]

NARRATIVE: CASE EVENT DATE: 2020
